FAERS Safety Report 13575685 (Version 1)
Quarter: 2017Q2

REPORT INFORMATION
  Report Type: Spontaneous
  Country: ES (occurrence: ES)
  Receive Date: 20170524
  Receipt Date: 20170524
  Transmission Date: 20170830
  Serious: Yes (Other)
  Sender: FDA-Public Use
  Company Number: ES-ASTRAZENECA-2017SE53864

PATIENT
  Age: 41 Year
  Sex: Female
  Weight: 49 kg

DRUGS (2)
  1. ZOMIG [Suspect]
     Active Substance: ZOLMITRIPTAN
     Indication: MIGRAINE
     Dosage: 2-4 TIMES A MONTH
     Route: 045
     Dates: start: 20161124
  2. RIZATRIPTAN. [Concomitant]
     Active Substance: RIZATRIPTAN
     Route: 048

REACTIONS (1)
  - Nasal septum perforation [Not Recovered/Not Resolved]

NARRATIVE: CASE EVENT DATE: 20170425
